FAERS Safety Report 9426386 (Version 1)
Quarter: 2013Q3

REPORT INFORMATION
  Report Type: Spontaneous
  Country: US (occurrence: US)
  Receive Date: 20130730
  Receipt Date: 20130730
  Transmission Date: 20140515
  Serious: Yes (Other)
  Sender: FDA-Public Use
  Company Number: US-SUN PHARMACEUTICAL INDUSTRIES LTD-2013SUN01081

PATIENT
  Age: 55 Year
  Sex: Male

DRUGS (2)
  1. OXYCODONE [Suspect]
     Indication: PAIN
  2. CYCLOBENZAPRINE [Interacting]
     Indication: MUSCLE RELAXANT THERAPY
     Dosage: 10MG THREE TIMES PER DAY
     Route: 065

REACTIONS (6)
  - Potentiating drug interaction [Recovered/Resolved]
  - Psychotic disorder [Recovered/Resolved]
  - Hyperkinesia [Recovered/Resolved]
  - Myoclonus [Recovered/Resolved]
  - Posture abnormal [Recovered/Resolved]
  - Delirium [Recovered/Resolved]
